FAERS Safety Report 8577904-1 (Version None)
Quarter: 2012Q3

REPORT INFORMATION
  Report Type: 
  Country: None (occurrence: None)
  Receive Date: 20120808
  Receipt Date: 20120725
  Transmission Date: 20120928
  Serious: No
  Sender: FDA-Public Use
  Company Number: US-BIOGENIDEC-2012BI027629

PATIENT
  Sex: Female

DRUGS (1)
  1. AVONEX [Suspect]
     Indication: MULTIPLE SCLEROSIS
     Route: 030
     Dates: start: 20090918

REACTIONS (6)
  - SWELLING FACE [None]
  - EYE SWELLING [None]
  - PRURITUS [None]
  - MIGRAINE [None]
  - DYSPNOEA [None]
  - FOOD ALLERGY [None]
